FAERS Safety Report 7262939-1 (Version None)
Quarter: 2011Q1

REPORT INFORMATION
  Report Type: 
  Country: None (occurrence: None)
  Receive Date: 20110130
  Receipt Date: 20101015
  Transmission Date: 20110831
  Serious: No
  Sender: FDA-Public Use
  Company Number: US-ABBOTT-10P-163-0678682-00

PATIENT
  Age: 47 Year
  Sex: Female

DRUGS (10)
  1. HUMIRA [Suspect]
     Indication: PSORIATIC ARTHROPATHY
     Dates: start: 20090901
  2. CYMBALTA [Concomitant]
     Indication: FIBROMYALGIA
  3. LORAZEPAM [Concomitant]
     Indication: ANXIETY
  4. HYDROXYZINE [Concomitant]
     Indication: PRURITUS
  5. ALLEGRA [Concomitant]
     Indication: HYPERSENSITIVITY
  6. MEDROL [Concomitant]
     Indication: PRODUCT USED FOR UNKNOWN INDICATION
  7. CYMBALTA [Concomitant]
     Indication: DEPRESSION
  8. ZOLPIDEM [Concomitant]
     Indication: INSOMNIA
  9. TYLENOL W/ CODEINE [Concomitant]
     Indication: PAIN
  10. VALTREX [Concomitant]
     Indication: HERPES VIRUS INFECTION

REACTIONS (2)
  - PSORIATIC ARTHROPATHY [None]
  - INFLUENZA [None]
